FAERS Safety Report 5609213-4 (Version None)
Quarter: 2008Q1

REPORT INFORMATION
  Report Type: 
  Country: None (occurrence: None)
  Receive Date: 20080130
  Receipt Date: 20080130
  Transmission Date: 20080703
  Serious: Yes (Hospitalization)
  Sender: FDA-Public Use
  Company Number: None

PATIENT
  Sex: Male
  Weight: 19.14 kg

DRUGS (5)
  1. CYCLOPHOSPHAMIDE [Suspect]
     Dosage: 465 MG
     Dates: end: 20080121
  2. METHYLPREDNISOLONE [Suspect]
     Dosage: 152 MG
     Dates: end: 20080111
  3. PREDNISONE TAB [Suspect]
     Dosage: 250 MG
  4. RITUXIMAB (MOAB C2B8 ANTI CD20, CHIMERIC) [Suspect]
     Dosage: 600 MG
     Dates: end: 20080117
  5. VINCRISTINE SULFATE [Suspect]
     Dosage: 1.57 MG
     Dates: end: 20080121

REACTIONS (3)
  - ALANINE AMINOTRANSFERASE INCREASED [None]
  - ASPARTATE AMINOTRANSFERASE INCREASED [None]
  - LIVER DISORDER [None]
